FAERS Safety Report 15059800 (Version 1)
Quarter: 2018Q2

REPORT INFORMATION
  Report Type: Spontaneous
  Country: US (occurrence: US)
  Receive Date: 20180625
  Receipt Date: 20180625
  Transmission Date: 20180711
  Serious: Yes (Other)
  Sender: FDA-Public Use
  Company Number: US-SA-2018SA009015

PATIENT
  Age: 48 Year
  Sex: Female

DRUGS (7)
  1. PARAPLATIN [Concomitant]
     Active Substance: CARBOPLATIN
  2. HERCEPTIN [Concomitant]
     Active Substance: TRASTUZUMAB
     Route: 065
  3. TAXOTERE [Suspect]
     Active Substance: DOCETAXEL
     Indication: BREAST CANCER FEMALE
     Dosage: UNK UNK,Q3W
     Route: 042
     Dates: start: 20150113, end: 20150113
  4. TAXOTERE [Suspect]
     Active Substance: DOCETAXEL
     Dosage: UNK UNK,Q3W
     Route: 042
     Dates: start: 20150428, end: 20150428
  5. FUROSEMIDE. [Concomitant]
     Active Substance: FUROSEMIDE
  6. CARBOPLATIN. [Concomitant]
     Active Substance: CARBOPLATIN
  7. PERJETA [Concomitant]
     Active Substance: PERTUZUMAB
     Route: 065

REACTIONS (9)
  - Alopecia [Not Recovered/Not Resolved]
  - Neutropenia [Unknown]
  - Diarrhoea [Unknown]
  - Arthralgia [Unknown]
  - Neuralgia [Unknown]
  - Psychological trauma [Unknown]
  - Fibromyalgia [Unknown]
  - Nausea [Unknown]
  - Vomiting [Unknown]

NARRATIVE: CASE EVENT DATE: 2015
